FAERS Safety Report 23686013 (Version 4)
Quarter: 2024Q4

REPORT INFORMATION
  Report Type: Spontaneous
  Country: JP (occurrence: JP)
  Receive Date: 20240329
  Receipt Date: 20241119
  Transmission Date: 20250114
  Serious: Yes (Other)
  Sender: BRISTOL-MYERS SQUIBB COMPANY
  Company Number: JP-BRISTOL-MYERS SQUIBB COMPANY-2024-050201

PATIENT
  Age: 58 Year
  Sex: Female
  Weight: 69.6 kg

DRUGS (7)
  1. LENADEX [Suspect]
     Active Substance: DEXAMETHASONE ACETATE
     Indication: Plasma cell myeloma
     Dates: start: 20171030, end: 20180301
  2. LENADEX [Suspect]
     Active Substance: DEXAMETHASONE ACETATE
     Dates: start: 20180815, end: 20190320
  3. LENADEX [Suspect]
     Active Substance: DEXAMETHASONE ACETATE
     Dates: start: 20191002, end: 20220125
  4. LENADEX [Suspect]
     Active Substance: DEXAMETHASONE ACETATE
     Dates: start: 202303
  5. EMPLICITI [Suspect]
     Active Substance: ELOTUZUMAB
     Indication: Plasma cell myeloma
     Dates: start: 202303
  6. POMALYST [Suspect]
     Active Substance: POMALIDOMIDE
     Indication: Plasma cell myeloma
     Dates: start: 20221012, end: 20230126
  7. POMALYST [Suspect]
     Active Substance: POMALIDOMIDE
     Dates: start: 202303

REACTIONS (1)
  - Osteonecrosis of jaw [Unknown]
